FAERS Safety Report 10284008 (Version 4)
Quarter: 2015Q2

REPORT INFORMATION
  Report Type: Spontaneous
  Country: AU (occurrence: AU)
  Receive Date: 20140708
  Receipt Date: 20150401
  Transmission Date: 20150821
  Serious: Yes (Hospitalization, Other)
  Sender: FDA-Public Use
  Company Number: AU-AMGEN INC.-AUSSP2014050296

PATIENT
  Age: 69 Year
  Sex: Female

DRUGS (1)
  1. PROLIA [Suspect]
     Active Substance: DENOSUMAB
     Indication: PRODUCT USED FOR UNKNOWN INDICATION
     Route: 065

REACTIONS (5)
  - Vitamin D deficiency [Unknown]
  - Hypocalcaemia [Recovered/Resolved]
  - Laryngospasm [Recovered/Resolved]
  - Pulmonary oedema [Unknown]
  - Electrocardiogram QT prolonged [Recovered/Resolved]
